FAERS Safety Report 7723825-3 (Version None)
Quarter: 2011Q3

REPORT INFORMATION
  Report Type: 
  Country: None (occurrence: None)
  Receive Date: 20110901
  Receipt Date: 20110824
  Transmission Date: 20111222
  Serious: Yes (Other)
  Sender: FDA-Public Use
  Company Number: CA-JNJFOC-20110812624

PATIENT
  Sex: Female
  Weight: 71 kg

DRUGS (6)
  1. SERTRALINE HYDROCHLORIDE [Concomitant]
  2. HRT [Concomitant]
     Dosage: Q 2ND DAY
  3. METHOTREXATE [Concomitant]
  4. LEVOTHYROXINE SODIUM [Concomitant]
  5. LYRICA [Concomitant]
  6. REMICADE [Suspect]
     Indication: RHEUMATOID ARTHRITIS
     Route: 042
     Dates: start: 20050615

REACTIONS (5)
  - SCAR [None]
  - DYSPNOEA [None]
  - PRURITUS [None]
  - INFUSION RELATED REACTION [None]
  - CHEST PAIN [None]
